FAERS Safety Report 10236235 (Version 2)
Quarter: 2014Q2

REPORT INFORMATION
  Report Type: Spontaneous
  Country: CH (occurrence: CH)
  Receive Date: 20140613
  Receipt Date: 20140619
  Transmission Date: 20141212
  Serious: Yes (Other)
  Sender: FDA-Public Use
  Company Number: CH-009507513-1406CHE003397

PATIENT
  Age: 51 Year
  Sex: Male

DRUGS (3)
  1. REMERON [Suspect]
     Dosage: UNKNOWN AMOUNT, ONCE
     Route: 048
     Dates: start: 20140115, end: 20140115
  2. VALPROIC ACID [Suspect]
     Dosage: 50 RETARD CAPSULES AT ONCE
     Route: 048
     Dates: start: 20140115, end: 20140115
  3. ALCOHOL [Suspect]
     Dosage: UNK
     Route: 048
     Dates: start: 20140115, end: 20140115

REACTIONS (3)
  - Suicide attempt [Recovered/Resolved]
  - Agitation [Recovered/Resolved]
  - Poisoning [Unknown]
